FAERS Safety Report 5847090-7 (Version None)
Quarter: 2008Q3

REPORT INFORMATION
  Report Type: 
  Country: None (occurrence: None)
  Receive Date: 20080815
  Receipt Date: 20080806
  Transmission Date: 20090109
  Serious: Yes (Other)
  Sender: FDA-Public Use
  Company Number: GB-PFIZER INC-2008066319

PATIENT
  Sex: Male

DRUGS (1)
  1. CARDURA XL [Suspect]
     Route: 048

REACTIONS (4)
  - DYSPNOEA [None]
  - FOREIGN BODY TRAUMA [None]
  - HAEMOPTYSIS [None]
  - PHARYNGEAL HAEMORRHAGE [None]
